FAERS Safety Report 8546550-8 (Version None)
Quarter: 2012Q3

REPORT INFORMATION
  Report Type: 
  Country: None (occurrence: None)
  Receive Date: 20120727
  Receipt Date: 20111221
  Transmission Date: 20120928
  Serious: No
  Sender: FDA-Public Use
  Company Number: US-ASTRAZENECA-2011SE78010

PATIENT
  Age: 60 Year
  Sex: Female

DRUGS (2)
  1. ALCOHOL [Interacting]
     Route: 065
  2. SEROQUEL [Suspect]
     Route: 048

REACTIONS (3)
  - ALCOHOL INTERACTION [None]
  - GASTRIC DISORDER [None]
  - DIARRHOEA [None]
